FAERS Safety Report 7214877-8 (Version None)
Quarter: 2011Q1

REPORT INFORMATION
  Report Type: 
  Country: None (occurrence: None)
  Receive Date: 20110107
  Receipt Date: 20100420
  Transmission Date: 20110831
  Serious: No
  Sender: FDA-Public Use
  Company Number: A0855881A

PATIENT
  Age: 40 Year
  Sex: Female

DRUGS (6)
  1. HORMONE [Concomitant]
  2. HYDROCHLOROTHIAZIDE [Concomitant]
  3. LOVAZA [Suspect]
     Dosage: 2CAP TWICE PER DAY
     Route: 048
     Dates: start: 20100418, end: 20100420
  4. MULTIVITAMIN [Concomitant]
  5. SUPPLEMENT [Concomitant]
  6. THYROID MEDICATION [Concomitant]

REACTIONS (1)
  - HYPOAESTHESIA [None]
